FAERS Safety Report 21969972 (Version 3)
Quarter: 2023Q1

REPORT INFORMATION
  Report Type: Report from Study
  Country: US (occurrence: US)
  Receive Date: 20230208
  Receipt Date: 20230220
  Transmission Date: 20230418
  Serious: No
  Sender: FDA-Public Use
  Company Number: US-002147023-NVSC2023US025822

PATIENT

DRUGS (1)
  1. OMNITROPE [Suspect]
     Active Substance: SOMATROPIN
     Indication: Product used for unknown indication
     Dosage: UNK (10 KIT 1 PEN)
     Route: 065
     Dates: start: 20221226

REACTIONS (2)
  - Device leakage [Unknown]
  - Incorrect dose administered by device [Unknown]
